FAERS Safety Report 19181216 (Version 1)
Quarter: 2021Q2

REPORT INFORMATION
  Report Type: Spontaneous
  Country: CA (occurrence: CA)
  Receive Date: 20210426
  Receipt Date: 20210426
  Transmission Date: 20210717
  Serious: Yes (Hospitalization)
  Sender: FDA-Public Use
  Company Number: NVSC2021CA090221

PATIENT
  Age: 86 Year
  Sex: Female
  Weight: 46 kg

DRUGS (1)
  1. SANDOZ DONEPEZIL [Suspect]
     Active Substance: DONEPEZIL HYDROCHLORIDE
     Indication: COGNITIVE DISORDER
     Dosage: 10 MG, QD
     Route: 048

REACTIONS (4)
  - Fall [Recovered/Resolved]
  - Pelvic fracture [Recovered/Resolved]
  - Rib fracture [Recovered/Resolved]
  - Bradycardia [Recovered/Resolved]
